FAERS Safety Report 5679116-8 (Version None)
Quarter: 2008Q1

REPORT INFORMATION
  Report Type: 
  Country: None (occurrence: None)
  Receive Date: 20080325
  Receipt Date: 20080313
  Transmission Date: 20080703
  Serious: Yes (Hospitalization, Other)
  Sender: FDA-Public Use
  Company Number: ES-BRISTOL-MYERS SQUIBB COMPANY-14114052

PATIENT
  Age: 43 Year
  Sex: Male

DRUGS (9)
  1. ATAZANAVIR SULFATE [Suspect]
     Indication: LIPODYSTROPHY ACQUIRED
     Route: 048
     Dates: start: 20060425, end: 20070824
  2. RITONAVIR [Suspect]
     Indication: LIPODYSTROPHY ACQUIRED
     Route: 048
     Dates: start: 20060425
  3. EPIVIR [Suspect]
     Indication: LIPODYSTROPHY ACQUIRED
     Route: 048
     Dates: start: 20060425
  4. VIREAD [Suspect]
     Indication: LIPODYSTROPHY ACQUIRED
     Route: 048
     Dates: start: 20060425
  5. DIAZEPAM [Concomitant]
     Dates: start: 20070402
  6. CITALOPRAM [Concomitant]
     Dates: start: 20061101
  7. COLME [Concomitant]
     Dates: start: 20070101
  8. LORAZEPAM [Concomitant]
     Dates: start: 20070101
  9. OMEPRAZOLE [Concomitant]
     Dates: start: 20070101

REACTIONS (1)
  - DRUG ABUSE [None]
